FAERS Safety Report 24066033 (Version 2)
Quarter: 2024Q3

REPORT INFORMATION
  Report Type: Spontaneous
  Country: US (occurrence: US)
  Receive Date: 20240709
  Receipt Date: 20240720
  Transmission Date: 20241016
  Serious: No
  Sender: TEVA
  Company Number: US-TEVA-VS-3216111

PATIENT
  Age: 44 Year
  Sex: Male

DRUGS (3)
  1. CARBAMAZEPINE [Suspect]
     Active Substance: CARBAMAZEPINE
     Indication: Trigeminal neuralgia
     Dosage: 1.5 TABLET IN THE AM AND 1.5 TABLET IN THE PM
     Route: 065
     Dates: start: 20200103
  2. CARBAMAZEPINE [Suspect]
     Active Substance: CARBAMAZEPINE
     Indication: Trigeminal neuralgia
     Dosage: HALF A PILL IN THE AM, HALF A PILL IN THE AFTERNOON, AND HALF OF A PILL IN THE PM
     Route: 065
  3. MOTRIN [Concomitant]
     Active Substance: IBUPROFEN
     Indication: Headache

REACTIONS (11)
  - Dizziness [Unknown]
  - Nausea [Unknown]
  - Eye inflammation [Unknown]
  - Facial nerve disorder [Unknown]
  - Feeling abnormal [Unknown]
  - Vertigo [Unknown]
  - Adverse event [Unknown]
  - Eye disorder [Unknown]
  - Off label use [Unknown]
  - Wrong technique in product usage process [Unknown]
  - Eye pain [Unknown]

NARRATIVE: CASE EVENT DATE: 20240622
